FAERS Safety Report 23643187 (Version 1)
Quarter: 2024Q1

REPORT INFORMATION
  Report Type: Spontaneous
  Country: US (occurrence: None)
  Receive Date: 20240315
  Receipt Date: 20240315
  Transmission Date: 20240410
  Serious: Yes (Hospitalization)
  Sender: FDA-Public Use
  Company Number: None

PATIENT
  Age: 15 Year
  Sex: Female
  Weight: 48.4 kg

DRUGS (2)
  1. CLOBAZAM [Suspect]
     Active Substance: CLOBAZAM
     Indication: Epilepsy
     Dosage: FREQUENCY : DAILY;?OTHER ROUTE : G-TUBE;?
     Route: 050
     Dates: start: 20240208, end: 20240310
  2. EPIDIOLEX [Concomitant]
     Active Substance: CANNABIDIOL
     Dates: start: 20220810

REACTIONS (2)
  - Rash [None]
  - Constipation [None]

NARRATIVE: CASE EVENT DATE: 20240311
